FAERS Safety Report 5182680-9 (Version None)
Quarter: 2006Q4

REPORT INFORMATION
  Report Type: 
  Country: None (occurrence: None)
  Receive Date: 20061211
  Receipt Date: 20061204
  Transmission Date: 20070319
  Serious: Yes (Hospitalization, Other)
  Sender: FDA-Public Use
  Company Number: L06-JPN-05086-01

PATIENT
  Age: 12 Year
  Sex: Female

DRUGS (1)
  1. THEOPHYLLINE [Suspect]
     Indication: ASTHMA
     Dosage: 300 MG

REACTIONS (14)
  - ATELECTASIS [None]
  - CEREBELLAR ATROPHY [None]
  - CEREBRAL ATROPHY [None]
  - CSF TEST ABNORMAL [None]
  - ENCEPHALOPATHY [None]
  - HEPATIC FAILURE [None]
  - HYPOTENSION [None]
  - INTERLEUKIN LEVEL INCREASED [None]
  - LEUKOPENIA [None]
  - NERVE INJURY [None]
  - NUCLEAR MAGNETIC RESONANCE IMAGING BRAIN ABNORMAL [None]
  - RENAL FAILURE [None]
  - STATUS EPILEPTICUS [None]
  - THROMBOPHLEBITIS [None]
